FAERS Safety Report 19880951 (Version 1)
Quarter: 2021Q3

REPORT INFORMATION
  Report Type: Spontaneous
  Country: CO (occurrence: CO)
  Receive Date: 20210924
  Receipt Date: 20210924
  Transmission Date: 20211014
  Serious: Yes (Other)
  Sender: FDA-Public Use
  Company Number: CO-POPULATION COUNCIL-2021TPC000188

PATIENT
  Age: 24 Year
  Sex: Female

DRUGS (1)
  1. JADELLE [Suspect]
     Active Substance: LEVONORGESTREL
     Indication: PRODUCT USED FOR UNKNOWN INDICATION
     Dosage: UNK
     Route: 059
     Dates: start: 20210804, end: 2021

REACTIONS (5)
  - Implant site infection [Unknown]
  - Implant site vesicles [Unknown]
  - Implant site oedema [Unknown]
  - Expulsion of medication [Recovered/Resolved]
  - Implant site warmth [Unknown]

NARRATIVE: CASE EVENT DATE: 2021
